FAERS Safety Report 5370449-1 (Version None)
Quarter: 2007Q2

REPORT INFORMATION
  Report Type: 
  Country: None (occurrence: None)
  Receive Date: 20070625
  Receipt Date: 20070625
  Transmission Date: 20071010
  Serious: Yes (Other)
  Sender: FDA-Public Use
  Company Number: None

PATIENT
  Sex: Female
  Weight: 56.6996 kg

DRUGS (1)
  1. VIVELLE-DOT [Suspect]
     Indication: MENOPAUSAL SYMPTOMS
     Dosage: 1 PATCH TWICE WEEKLY TRANSDERMAL
     Route: 062
     Dates: start: 20070529, end: 20070622

REACTIONS (2)
  - DRUG INEFFECTIVE [None]
  - PHARMACEUTICAL PRODUCT COMPLAINT [None]
